FAERS Safety Report 12567169 (Version 1)
Quarter: 2016Q3

REPORT INFORMATION
  Report Type: Spontaneous
  Country: GB (occurrence: GB)
  Receive Date: 20160718
  Receipt Date: 20160718
  Transmission Date: 20161109
  Serious: Yes (Other)
  Sender: FDA-Public Use
  Company Number: GB-MYLANLABS-2016M1029525

PATIENT

DRUGS (3)
  1. PREDNISOLONE. [Suspect]
     Active Substance: PREDNISOLONE
     Indication: ANGIOSARCOMA
     Dosage: 2 MG/KG/DAY
     Route: 048
  2. SIROLIMUS. [Suspect]
     Active Substance: SIROLIMUS
     Indication: ANGIOSARCOMA
     Dosage: 2 MG/M2/DAY (0.7 MG/DAY)
     Route: 065
  3. VINCRISTINE [Suspect]
     Active Substance: VINCRISTINE
     Indication: ANGIOSARCOMA
     Dosage: 0.2 MG WEEKLY
     Route: 065

REACTIONS (1)
  - Neutropenia [Unknown]
